FAERS Safety Report 23500690 (Version 1)
Quarter: 2024Q1

REPORT INFORMATION
  Report Type: Spontaneous
  Country: US (occurrence: US)
  Receive Date: 20240208
  Receipt Date: 20240208
  Transmission Date: 20240409
  Serious: No
  Sender: FDA-Public Use
  Company Number: US-VERICEL-US-VCEL-23-000269

PATIENT
  Sex: Female

DRUGS (1)
  1. MACI [Suspect]
     Active Substance: AUTOLOGOUS CULTURED CHONDROCYTES\SUS SCROFA COLLAGEN
     Indication: Chondroplasty
     Dosage: UNK
     Route: 050
     Dates: start: 20230323, end: 20230323

REACTIONS (1)
  - Treatment failure [Unknown]
